FAERS Safety Report 7057749-4 (Version None)
Quarter: 2010Q4

REPORT INFORMATION
  Report Type: 
  Country: None (occurrence: None)
  Receive Date: 20101022
  Receipt Date: 20101014
  Transmission Date: 20110411
  Serious: Yes (Hospitalization, Other)
  Sender: FDA-Public Use
  Company Number: JP-PFIZER INC-2010127127

PATIENT
  Age: 59 Year
  Sex: Male

DRUGS (4)
  1. DOXAZOSIN MESYLATE [Suspect]
     Indication: HYPERTENSION
     Dosage: UNK
     Route: 048
  2. AMLODIPINE BESYLATE [Suspect]
     Indication: HYPERTENSION
     Dosage: UNK
     Dates: start: 20020101
  3. HYDROCHLOROTHIAZIDE [Suspect]
     Indication: HYPERTENSION
     Dosage: 25 MG/DAY
  4. DIOVAN [Suspect]
     Indication: HYPERTENSION
     Dosage: 80 MG/DAY

REACTIONS (2)
  - BLOOD CALCIUM DECREASED [None]
  - MONOPLEGIA [None]
